FAERS Safety Report 11985637 (Version 1)
Quarter: 2016Q1

REPORT INFORMATION
  Report Type: Report from Study
  Country: US (occurrence: US)
  Receive Date: 20160201
  Receipt Date: 20160201
  Transmission Date: 20160526
  Serious: No
  Sender: FDA-Public Use
  Company Number: US-AMGEN-USASL2016010498

PATIENT
  Age: 62 Year
  Sex: Male

DRUGS (2)
  1. ENBREL [Suspect]
     Active Substance: ETANERCEPT
     Indication: PSORIATIC ARTHROPATHY
     Dosage: UNK UNK, ONCE WEEKLY
     Route: 065
     Dates: start: 201508
  2. METHOTREXATE [Concomitant]
     Active Substance: METHOTREXATE
     Dosage: 4 MG, UNK

REACTIONS (5)
  - Drug effect incomplete [Not Recovered/Not Resolved]
  - Red blood cell sedimentation rate decreased [Unknown]
  - Osteoarthritis [Unknown]
  - Foot deformity [Unknown]
  - Fibroma [Not Recovered/Not Resolved]
